FAERS Safety Report 16218527 (Version 2)
Quarter: 2019Q2

REPORT INFORMATION
  Report Type: Spontaneous
  Country: IT (occurrence: IT)
  Receive Date: 20190419
  Receipt Date: 20190428
  Transmission Date: 20190711
  Serious: Yes (Hospitalization)
  Sender: FDA-Public Use
  Company Number: PHHY2019IT089486

PATIENT
  Age: 63 Year
  Sex: Male

DRUGS (1)
  1. ESIDREX [Suspect]
     Active Substance: HYDROCHLOROTHIAZIDE
     Indication: HYPERTENSION
     Dosage: UNK
     Route: 065
     Dates: start: 20190106, end: 20190106

REACTIONS (6)
  - Metabolic acidosis [Unknown]
  - Vomiting [Unknown]
  - Pulmonary oedema [Unknown]
  - Rales [Unknown]
  - Bronchospasm [Unknown]
  - Cardiogenic shock [Unknown]

NARRATIVE: CASE EVENT DATE: 20190106
